FAERS Safety Report 17226462 (Version 2)
Quarter: 2020Q1

REPORT INFORMATION
  Report Type: Spontaneous
  Country: FR (occurrence: FR)
  Receive Date: 20200102
  Receipt Date: 20200125
  Transmission Date: 20200409
  Serious: No
  Sender: FDA-Public Use
  Company Number: FR-BAUSCH-BL-2019-066411

PATIENT
  Age: 77 Year
  Sex: Female

DRUGS (4)
  1. TETRACAINE. [Suspect]
     Active Substance: TETRACAINE
     Indication: LOCAL ANAESTHESIA
     Route: 047
  2. POVIDONE-IODINE. [Concomitant]
     Active Substance: POVIDONE-IODINE
     Indication: INFECTION PROPHYLAXIS
  3. AZYTER [Suspect]
     Active Substance: AZITHROMYCIN ANHYDROUS
     Indication: PRODUCT USED FOR UNKNOWN INDICATION
     Route: 047
  4. EYLEA [Suspect]
     Active Substance: AFLIBERCEPT
     Indication: AGE-RELATED MACULAR DEGENERATION
     Dosage: INTRAVITREAL ROUTE
     Route: 050

REACTIONS (3)
  - Conjunctivitis [Unknown]
  - Dermatitis [Unknown]
  - Drug hypersensitivity [Unknown]
